FAERS Safety Report 4292525-7 (Version None)
Quarter: 2004Q1

REPORT INFORMATION
  Report Type: 
  Country: None (occurrence: None)
  Receive Date: 20040211
  Receipt Date: 20040211
  Transmission Date: 20041129
  Serious: Yes (Life-Threatening, Hospitalization)
  Sender: FDA-Public Use
  Company Number: None

PATIENT
  Age: 69 Year
  Sex: Male
  Weight: 81.6475 kg

DRUGS (12)
  1. INFLIXIMAB CENTOCOR [Suspect]
     Indication: RHEUMATOID ARTHRITIS
     Dosage: 3 MG/KG EVERY 2 WE IV
     Route: 042
     Dates: start: 20031208, end: 20031222
  2. LEFLUNOMIDE/PREDNISONE [Suspect]
     Indication: RHEUMATOID ARTHRITIS
     Dosage: 20 MG/5MG DAILY ORAL
     Route: 048
  3. ALLOPURINOL [Concomitant]
  4. DIGOXIN [Concomitant]
  5. PRAVACHOL [Concomitant]
  6. ATENOLOL [Concomitant]
  7. LOSARTAN [Concomitant]
  8. CELEBREX [Concomitant]
  9. ASPIRIN [Concomitant]
  10. VITAMIN E [Concomitant]
  11. CALCIUM [Concomitant]
  12. ATENOLOL [Concomitant]

REACTIONS (13)
  - ACUTE RESPIRATORY DISTRESS SYNDROME [None]
  - DISSEMINATED INTRAVASCULAR COAGULATION [None]
  - HAEMODIALYSIS [None]
  - HEPATIC FAILURE [None]
  - MULTI-ORGAN FAILURE [None]
  - NECROSIS [None]
  - POST PROCEDURAL COMPLICATION [None]
  - RENAL FAILURE [None]
  - RESPIRATORY FAILURE [None]
  - RHABDOMYOLYSIS [None]
  - SEPTIC SHOCK [None]
  - SKIN NECROSIS [None]
  - THROMBOSIS [None]
